FAERS Safety Report 16599392 (Version 1)
Quarter: 2019Q3

REPORT INFORMATION
  Report Type: Report from Study
  Country: MX (occurrence: MX)
  Receive Date: 20190719
  Receipt Date: 20190719
  Transmission Date: 20191004
  Serious: Yes (Hospitalization, Other)
  Sender: FDA-Public Use
  Company Number: MX-ASTRAZENECA-2019SF02568

PATIENT
  Age: 733 Month
  Sex: Female
  Weight: 50 kg

DRUGS (3)
  1. LYNPARZA [Suspect]
     Active Substance: OLAPARIB
     Indication: OVARIAN CANCER
     Route: 048
     Dates: end: 201707
  2. EUTIROX [Concomitant]
     Active Substance: LEVOTHYROXINE SODIUM
     Indication: HYPOTHYROIDISM
     Dosage: 75.0UG UNKNOWN
     Route: 048
     Dates: start: 2011
  3. LYNPARZA [Suspect]
     Active Substance: OLAPARIB
     Indication: OVARIAN CANCER
     Route: 048
     Dates: start: 201704, end: 201704

REACTIONS (9)
  - Amnesia [Recovered/Resolved]
  - Fatigue [Recovered/Resolved]
  - Mucosal dryness [Recovered/Resolved]
  - Oral disorder [Recovered/Resolved]
  - Mucosal inflammation [Recovered/Resolved]
  - Suicidal ideation [Recovered/Resolved]
  - Pulmonary oedema [Recovered/Resolved]
  - Gastrointestinal haemorrhage [Recovered/Resolved]
  - Anal incontinence [Recovered/Resolved]

NARRATIVE: CASE EVENT DATE: 201704
